FAERS Safety Report 8615786-X (Version None)
Quarter: 2012Q3

REPORT INFORMATION
  Report Type: 
  Country: None (occurrence: None)
  Receive Date: 20120823
  Receipt Date: 20120821
  Transmission Date: 20120928
  Serious: Yes (Hospitalization, Other)
  Sender: FDA-Public Use
  Company Number: US-PFIZER INC-2012205274

PATIENT
  Age: 55 Year
  Sex: Female
  Weight: 55.329 kg

DRUGS (4)
  1. CELEBREX [Suspect]
     Indication: OSTEOARTHRITIS
     Dosage: 200 MG, 1X/DAY
     Route: 048
     Dates: start: 20030101
  2. ZOLOFT [Concomitant]
     Dosage: UNK
  3. SOMA [Concomitant]
     Dosage: UNK
  4. METHOTREXATE [Concomitant]
     Dosage: UNK
     Dates: end: 20120701

REACTIONS (6)
  - RHEUMATOID ARTHRITIS [None]
  - GAIT DISTURBANCE [None]
  - SPINAL CORD INJURY CERVICAL [None]
  - PAIN [None]
  - INSOMNIA [None]
  - WEIGHT DECREASED [None]
